FAERS Safety Report 4490362-1 (Version None)
Quarter: 2004Q3

REPORT INFORMATION
  Report Type: 
  Country: None (occurrence: None)
  Receive Date: 20040921
  Receipt Date: 20031230
  Transmission Date: 20050211
  Serious: Yes (Hospitalization)
  Sender: FDA-Public Use
  Company Number: 163-20785-03120614

PATIENT
  Age: 63 Year
  Sex: Female

DRUGS (2)
  1. THALOMID [Suspect]
     Indication: METASTASES TO CENTRAL NERVOUS SYSTEM
     Dosage: 400 MG, QD, ORAL
     Route: 048
     Dates: start: 20031001, end: 20031006
  2. RADIATION THERAPY [Suspect]
     Indication: METASTASES TO CENTRAL NERVOUS SYSTEM

REACTIONS (19)
  - ABDOMINAL PAIN [None]
  - ANAEMIA [None]
  - BLOOD AMYLASE INCREASED [None]
  - BLOOD CREATININE DECREASED [None]
  - BLOOD UREA DECREASED [None]
  - COLITIS ISCHAEMIC [None]
  - CONVULSION [None]
  - DEHYDRATION [None]
  - DIVERTICULUM [None]
  - GASTROINTESTINAL HAEMORRHAGE [None]
  - HAEMATOCHEZIA [None]
  - HYPEROSMOLAR STATE [None]
  - HYPOKALAEMIA [None]
  - HYPONATRAEMIA [None]
  - INFLAMMATORY BOWEL DISEASE [None]
  - MESENTERIC VASCULAR INSUFFICIENCY [None]
  - MUSCLE CRAMP [None]
  - PARAESTHESIA [None]
  - SINUS TACHYCARDIA [None]
